FAERS Safety Report 7897564 (Version 3)
Quarter: 2013Q2

REPORT INFORMATION
  Report Type: Spontaneous
  Country: SE (occurrence: SE)
  Receive Date: 20110413
  Receipt Date: 20130422
  Transmission Date: 20140414
  Serious: Yes (Hospitalization, Other)
  Sender: FDA-Public Use
  Company Number: SE-ABBOTT-11P-150-0714019-00

PATIENT
  Age: 63 Year
  Sex: Male

DRUGS (6)
  1. HUMIRA 40 MG/ 0.8 ML PRE-FILLED SYRINGE [Suspect]
     Indication: PSORIATIC ARTHROPATHY
     Route: 058
     Dates: start: 20100408, end: 20101228
  2. INSULATARD [Concomitant]
     Indication: PRODUCT USED FOR UNKNOWN INDICATION
  3. FELODIPIN [Concomitant]
     Indication: PRODUCT USED FOR UNKNOWN INDICATION
  4. ENALAPRIL COMP [Concomitant]
     Indication: PRODUCT USED FOR UNKNOWN INDICATION
  5. SIMVASTATIN [Concomitant]
     Indication: PRODUCT USED FOR UNKNOWN INDICATION
  6. BEHEPAN [Concomitant]

REACTIONS (2)
  - Meningitis aseptic [Recovered/Resolved]
  - Vertigo [Not Recovered/Not Resolved]
